FAERS Safety Report 15013293 (Version 1)
Quarter: 2018Q2

REPORT INFORMATION
  Report Type: Report from Study
  Country: US (occurrence: US)
  Receive Date: 20180614
  Receipt Date: 20180614
  Transmission Date: 20180711
  Serious: Yes (Other)
  Sender: FDA-Public Use
  Company Number: US-GILEAD-2018-0344297

PATIENT
  Age: 51 Year
  Sex: Male

DRUGS (12)
  1. EFAVIRENZ/EMTRICITABINE/TENOFOVIR DISOPROXIL FUMARATE [Suspect]
     Active Substance: EFAVIRENZ\EMTRICITABINE\TENOFOVIR DISOPROXIL FUMARATE
     Indication: PRODUCT USED FOR UNKNOWN INDICATION
     Dosage: 1 DF, QD
     Route: 065
  2. PROPRANOLOL [Concomitant]
     Active Substance: PROPRANOLOL HYDROCHLORIDE
  3. OMEGA 3                            /01333901/ [Concomitant]
     Active Substance: FISH OIL\TOCOPHEROL
  4. MULTIVITAMIN                       /00097801/ [Concomitant]
     Active Substance: VITAMINS
  5. ROSUVASTATIN. [Concomitant]
     Active Substance: ROSUVASTATIN
  6. EDARBI [Concomitant]
     Active Substance: AZILSARTAN KAMEDOXOMIL
  7. ASPIRIN                            /00002701/ [Concomitant]
     Active Substance: ASPIRIN
  8. DULOXETINE. [Concomitant]
     Active Substance: DULOXETINE
  9. D [Concomitant]
  10. FIBER [Concomitant]
     Active Substance: PSYLLIUM HUSK
  11. K                                  /00031401/ [Concomitant]
  12. MG                                 /07507001/ [Concomitant]

REACTIONS (8)
  - Blood cholesterol increased [Not Recovered/Not Resolved]
  - Back pain [Unknown]
  - Disturbance in attention [Recovered/Resolved]
  - Alcoholism [Not Recovered/Not Resolved]
  - Memory impairment [Unknown]
  - Product use issue [Not Recovered/Not Resolved]
  - Hypertension [Not Recovered/Not Resolved]
  - Depression [Not Recovered/Not Resolved]
